FAERS Safety Report 5227891-9 (Version None)
Quarter: 2007Q1

REPORT INFORMATION
  Report Type: 
  Country: None (occurrence: None)
  Receive Date: 20070202
  Receipt Date: 20070123
  Transmission Date: 20070707
  Serious: Yes (Other)
  Sender: FDA-Public Use
  Company Number: AU-PFIZER INC-2006145458

PATIENT
  Sex: Male

DRUGS (2)
  1. XALATAN [Suspect]
     Indication: GLAUCOMA
     Route: 047
     Dates: start: 20030201, end: 20060101
  2. COMBIGAN [Concomitant]
     Dates: start: 20050901, end: 20061101

REACTIONS (1)
  - MYOCARDIAL INFARCTION [None]
